FAERS Safety Report 19637496 (Version 1)
Quarter: 2021Q3

REPORT INFORMATION
  Report Type: Spontaneous
  Country: US (occurrence: US)
  Receive Date: 20210729
  Receipt Date: 20210729
  Transmission Date: 20211014
  Serious: No
  Sender: FDA-Public Use
  Company Number: US-PERRIGO-20US015964

PATIENT
  Age: 62 Year
  Sex: Male
  Weight: 77.1 kg

DRUGS (1)
  1. MINOXIDIL. [Suspect]
     Active Substance: MINOXIDIL
     Indication: ALOPECIA
     Dosage: 1 ML, BID
     Route: 061
     Dates: start: 20201026, end: 20201031

REACTIONS (7)
  - Application site pruritus [Recovered/Resolved]
  - Swelling face [Recovered/Resolved]
  - Application site dryness [Recovered/Resolved]
  - Application site discharge [Recovered/Resolved]
  - Product administered at inappropriate site [Recovered/Resolved]
  - Application site irritation [Recovered/Resolved]
  - Application site erythema [Recovered/Resolved]

NARRATIVE: CASE EVENT DATE: 20201026
